FAERS Safety Report 6380819-0 (Version None)
Quarter: 2009Q3

REPORT INFORMATION
  Report Type: 
  Country: None (occurrence: None)
  Receive Date: 20090929
  Receipt Date: 20090916
  Transmission Date: 20100115
  Serious: Yes (Other)
  Sender: FDA-Public Use
  Company Number: DK-PFIZER INC-2009270142

PATIENT
  Age: 67 Year

DRUGS (3)
  1. SUNITINIB MALATE [Suspect]
     Indication: RENAL CANCER METASTATIC
     Dosage: UNK
     Dates: start: 20090828, end: 20090915
  2. FURIX [Concomitant]
     Dosage: 40 MG, 2X/DAY
  3. KALEORID [Concomitant]
     Dosage: 750 MG, 2X/DAY

REACTIONS (4)
  - BLOOD CREATININE INCREASED [None]
  - BLOOD POTASSIUM INCREASED [None]
  - BLOOD UREA INCREASED [None]
  - RENAL FAILURE [None]
